FAERS Safety Report 11322475 (Version 2)
Quarter: 2015Q3

REPORT INFORMATION
  Report Type: Spontaneous
  Country: US (occurrence: US)
  Receive Date: 20150730
  Receipt Date: 20150818
  Transmission Date: 20151125
  Serious: No
  Sender: FDA-Public Use
  Company Number: US-PFIZER INC-2015251370

PATIENT
  Age: 11 Year
  Sex: Male

DRUGS (6)
  1. QUILLIVANT XR [Suspect]
     Active Substance: METHYLPHENIDATE HYDROCHLORIDE
     Dosage: 5 ML, 1X/DAY
     Route: 048
     Dates: start: 20150707, end: 201507
  2. QUILLIVANT XR [Suspect]
     Active Substance: METHYLPHENIDATE HYDROCHLORIDE
     Dosage: 6 ML, 1X/DAY
     Route: 048
     Dates: start: 201507, end: 201507
  3. INTUNIV [Concomitant]
     Active Substance: GUANFACINE HYDROCHLORIDE
     Indication: ATTENTION DEFICIT/HYPERACTIVITY DISORDER
     Dosage: 2 MG, DAILY (QAM)
     Dates: start: 201409
  4. QUILLIVANT XR [Suspect]
     Active Substance: METHYLPHENIDATE HYDROCHLORIDE
     Indication: ATTENTION DEFICIT/HYPERACTIVITY DISORDER
     Dosage: UNK
     Dates: start: 20150612
  5. QUILLIVANT XR [Suspect]
     Active Substance: METHYLPHENIDATE HYDROCHLORIDE
     Dosage: 5 ML, 1X/DAY
     Route: 048
     Dates: start: 201507, end: 201507
  6. DIAZEPAM. [Concomitant]
     Active Substance: DIAZEPAM
     Indication: ANXIETY
     Dosage: 2 MG, AS NEEDED [EVERY 6 HOURS]

REACTIONS (7)
  - Product formulation issue [Unknown]
  - Headache [Recovered/Resolved]
  - Agitation [Not Recovered/Not Resolved]
  - Abnormal behaviour [Not Recovered/Not Resolved]
  - Migraine [Recovered/Resolved]
  - Photophobia [Unknown]
  - Formication [Not Recovered/Not Resolved]

NARRATIVE: CASE EVENT DATE: 201507
